FAERS Safety Report 5233394-8 (Version None)
Quarter: 2007Q1

REPORT INFORMATION
  Report Type: 
  Country: None (occurrence: None)
  Receive Date: 20070206
  Receipt Date: 20070122
  Transmission Date: 20070707
  Serious: Yes (Other)
  Sender: FDA-Public Use
  Company Number: US-CVT-070032

PATIENT
  Age: 92 Year
  Sex: Male

DRUGS (5)
  1. RANEXA [Suspect]
     Indication: ANGINA PECTORIS
     Dosage: 500 MG, BID, ORAL
     Route: 048
     Dates: start: 20061204, end: 20061204
  2. ISOSORBIDE (ISOSORBIDE) [Concomitant]
  3. FUROSEMIDE/00032601/ (FUROSEMIDE) [Concomitant]
  4. PANTOPRAZOLE SODIUM [Concomitant]
  5. RAMIPRIL /00885601/ (RAMIPRIL) [Concomitant]

REACTIONS (7)
  - DIZZINESS [None]
  - FACIAL BONES FRACTURE [None]
  - FALL [None]
  - HEAD INJURY [None]
  - LOSS OF CONSCIOUSNESS [None]
  - SINUS BRADYCARDIA [None]
  - SKIN LACERATION [None]
